FAERS Safety Report 13822563 (Version 1)
Quarter: 2017Q3

REPORT INFORMATION
  Report Type: Spontaneous
  Country: JP (occurrence: JP)
  Receive Date: 20170801
  Receipt Date: 20170801
  Transmission Date: 20171127
  Serious: Yes (Hospitalization, Other)
  Sender: FDA-Public Use
  Company Number: JP-TOLMAR, INC.-TOLG20170322

PATIENT
  Age: 18 Year
  Sex: Female

DRUGS (1)
  1. LEVETIRACETAM. [Suspect]
     Active Substance: LEVETIRACETAM
     Indication: EPILEPSY
     Dosage: 1,000 MG
     Route: 065

REACTIONS (3)
  - Drug ineffective [None]
  - Withdrawal syndrome [Recovered/Resolved]
  - Depression [Recovering/Resolving]
